FAERS Safety Report 6202831-4 (Version None)
Quarter: 2009Q2

REPORT INFORMATION
  Report Type: 
  Country: None (occurrence: None)
  Receive Date: 20090526
  Receipt Date: 20090519
  Transmission Date: 20091009
  Serious: Yes (Hospitalization)
  Sender: FDA-Public Use
  Company Number: US-GILEAD-2009-0022051

PATIENT

DRUGS (12)
  1. LETAIRIS [Suspect]
     Indication: PULMONARY ARTERIAL HYPERTENSION
     Route: 048
     Dates: start: 20090331
  2. WARFARIN SODIUM [Concomitant]
  3. ZEBETA [Concomitant]
  4. ALBUTEROL [Concomitant]
  5. LIPITOR [Concomitant]
  6. PLETAL [Concomitant]
  7. REQUIP [Concomitant]
  8. BACTRIM [Concomitant]
  9. PHENOBARBITAL [Concomitant]
  10. OXYCODONE HCL [Concomitant]
  11. LEXAPRO [Concomitant]
  12. GABAPENTIN [Concomitant]

REACTIONS (1)
  - UNEVALUABLE EVENT [None]
